FAERS Safety Report 8136845-4 (Version None)
Quarter: 2012Q1

REPORT INFORMATION
  Report Type: 
  Country: None (occurrence: None)
  Receive Date: 20120214
  Receipt Date: 20120207
  Transmission Date: 20120608
  Serious: Yes (Death, Hospitalization, Other)
  Sender: FDA-Public Use
  Company Number: BE-CELGENEUS-013-50794-10060823

PATIENT
  Sex: Female

DRUGS (1)
  1. VIDAZA [Suspect]
     Route: 058
     Dates: start: 20100218, end: 20100425

REACTIONS (4)
  - PNEUMONIA [None]
  - BONE MARROW FAILURE [None]
  - ASPERGILLOSIS [None]
  - PANCYTOPENIA [None]
